FAERS Safety Report 5053392-7 (Version None)
Quarter: 2006Q3

REPORT INFORMATION
  Report Type: 
  Country: None (occurrence: None)
  Receive Date: 20060712
  Receipt Date: 20060616
  Transmission Date: 20061208
  Serious: Yes (Hospitalization)
  Sender: FDA-Public Use
  Company Number: 6662

PATIENT
  Age: 53 Year
  Sex: Female

DRUGS (3)
  1. METHOTREXATE [Suspect]
     Dosage: 10 MG DAILY IM
     Route: 030
  2. CYCLOSPORINE [Suspect]
     Indication: MYOSITIS
     Dosage: 100 MG DAILY PO
     Route: 048
  3. PREDNISOLONE [Suspect]
     Dosage: 5 MG DAILY

REACTIONS (8)
  - BURSITIS [None]
  - C-REACTIVE PROTEIN INCREASED [None]
  - JOINT EFFUSION [None]
  - MYCOBACTERIAL INFECTION [None]
  - NEUTROPHIL COUNT INCREASED [None]
  - OSTEOARTHRITIS [None]
  - SYNOVIAL CYST [None]
  - SYNOVIAL DISORDER [None]
